FAERS Safety Report 9116338 (Version 1)
Quarter: 2013Q1

REPORT INFORMATION
  Report Type: Spontaneous
  Country: FR (occurrence: FR)
  Receive Date: 20130225
  Receipt Date: 20130225
  Transmission Date: 20140127
  Serious: Yes (Death, Hospitalization)
  Sender: FDA-Public Use
  Company Number: FR-ROCHE-1194355

PATIENT
  Age: 30 Year
  Sex: Female

DRUGS (15)
  1. ROVALCYTE [Suspect]
     Indication: PRODUCT USED FOR UNKNOWN INDICATION
     Route: 048
     Dates: start: 20121029, end: 20121110
  2. ROVALCYTE [Suspect]
     Route: 048
     Dates: start: 20121031, end: 20121110
  3. CELLCEPT [Suspect]
     Indication: PRODUCT USED FOR UNKNOWN INDICATION
     Dosage: 2000 MG/ 24 H
     Route: 048
     Dates: start: 20121029, end: 20121030
  4. CELLCEPT [Suspect]
     Dosage: 2000MG / 24 HOUR
     Route: 042
     Dates: start: 20121030, end: 20121107
  5. VISTIDE [Suspect]
     Indication: VIRAL HAEMORRHAGIC CYSTITIS
     Route: 042
     Dates: start: 20120927
  6. VISTIDE [Suspect]
     Route: 042
     Dates: end: 20121026
  7. VISTIDE [Suspect]
     Route: 043
     Dates: start: 20121027, end: 20121030
  8. VISTIDE [Suspect]
     Route: 042
     Dates: start: 201207, end: 201208
  9. PROGRAF [Suspect]
     Indication: PRODUCT USED FOR UNKNOWN INDICATION
     Route: 048
     Dates: start: 20121019, end: 20121029
  10. FOSCAVIR [Suspect]
     Indication: PRODUCT USED FOR UNKNOWN INDICATION
     Dosage: 6 G/ 250 ML AT THE RATE OF 6 G/24 H
     Route: 042
     Dates: start: 20121018, end: 20121029
  11. TAVANIC [Suspect]
     Indication: PRODUCT USED FOR UNKNOWN INDICATION
     Route: 048
     Dates: start: 20121029, end: 20121104
  12. DELURSAN [Concomitant]
     Route: 048
     Dates: start: 20121029, end: 20121107
  13. HEPARINE [Concomitant]
     Route: 065
     Dates: start: 20121029, end: 20121106
  14. MORPHINE [Concomitant]
     Route: 065
  15. DROPERIDOL [Concomitant]
     Route: 042
     Dates: start: 20121030, end: 20121101

REACTIONS (1)
  - Renal failure acute [Fatal]
